FAERS Safety Report 12261500 (Version 2)
Quarter: 2016Q3

REPORT INFORMATION
  Report Type: Spontaneous
  Country: FR (occurrence: FR)
  Receive Date: 20160413
  Receipt Date: 20160805
  Transmission Date: 20161109
  Serious: Yes (Life-Threatening)
  Sender: FDA-Public Use
  Company Number: FR-009507513-1604FRA004393

PATIENT
  Sex: Female

DRUGS (3)
  1. PROPOFOL. [Suspect]
     Active Substance: PROPOFOL
     Dosage: UNK
     Route: 042
     Dates: start: 20160316, end: 20160316
  2. ESMERON [Suspect]
     Active Substance: ROCURONIUM BROMIDE
     Dosage: UNK
     Route: 042
     Dates: start: 20160316, end: 20160316
  3. SUFENTANIL [Suspect]
     Active Substance: SUFENTANIL
     Dosage: UNK
     Route: 042
     Dates: start: 20160316, end: 20160316

REACTIONS (2)
  - Generalised tonic-clonic seizure [Recovered/Resolved]
  - Anaphylactic shock [Recovered/Resolved]
